FAERS Safety Report 25074695 (Version 3)
Quarter: 2025Q2

REPORT INFORMATION
  Report Type: Spontaneous
  Country: US (occurrence: US)
  Receive Date: 20250313
  Receipt Date: 20250422
  Transmission Date: 20250717
  Serious: Yes (Death, Other)
  Sender: DR REDDYS
  Company Number: US-drreddys-SPO/USA/23/0163941

PATIENT
  Age: 13 Year
  Sex: Male

DRUGS (1)
  1. ACCUTANE [Suspect]
     Active Substance: ISOTRETINOIN
     Indication: Acne
     Dates: start: 20230301, end: 20230323

REACTIONS (2)
  - Completed suicide [Fatal]
  - Therapy cessation [Unknown]

NARRATIVE: CASE EVENT DATE: 20230323
